FAERS Safety Report 11825642 (Version 1)
Quarter: 2015Q4

REPORT INFORMATION
  Report Type: Spontaneous
  Country: US (occurrence: US)
  Receive Date: 20151211
  Receipt Date: 20151211
  Transmission Date: 20160305
  Serious: No
  Sender: FDA-Public Use
  Company Number: US-JNJFOC-20150819993

PATIENT
  Sex: Male

DRUGS (9)
  1. ONGLYZA [Concomitant]
     Active Substance: SAXAGLIPTIN HYDROCHLORIDE
  2. IMBRUVICA [Suspect]
     Active Substance: IBRUTINIB
     Indication: CHRONIC LYMPHOCYTIC LEUKAEMIA
     Route: 048
     Dates: start: 2015
  3. METFORMIN [Concomitant]
     Active Substance: METFORMIN HYDROCHLORIDE
  4. ASPIRIN. [Concomitant]
     Active Substance: ASPIRIN
  5. IMBRUVICA [Suspect]
     Active Substance: IBRUTINIB
     Indication: CHRONIC LYMPHOCYTIC LEUKAEMIA
     Route: 048
     Dates: start: 20140221, end: 2015
  6. LISINOPRIL. [Concomitant]
     Active Substance: LISINOPRIL
  7. LOVAZA [Concomitant]
     Active Substance: OMEGA-3-ACID ETHYL ESTERS
  8. TRILIPIX [Concomitant]
     Active Substance: FENOFIBRIC ACID
  9. SERTRALINE [Concomitant]
     Active Substance: SERTRALINE HYDROCHLORIDE

REACTIONS (8)
  - Hypoaesthesia [Unknown]
  - Balance disorder [Unknown]
  - Constipation [Unknown]
  - Diabetes mellitus [Recovering/Resolving]
  - Paraesthesia [Unknown]
  - Dizziness [Not Recovered/Not Resolved]
  - Fall [Unknown]
  - Ankle fracture [Unknown]

NARRATIVE: CASE EVENT DATE: 2015
